FAERS Safety Report 10708518 (Version 2)
Quarter: 2015Q1

REPORT INFORMATION
  Report Type: Report from Study
  Country: NL (occurrence: NL)
  Receive Date: 20150113
  Receipt Date: 20150115
  Transmission Date: 20150721
  Serious: Yes (Hospitalization)
  Sender: FDA-Public Use
  Company Number: NL-ROCHE-1517628

PATIENT
  Age: 36 Year
  Sex: Female

DRUGS (8)
  1. APREPITANT. [Concomitant]
     Active Substance: APREPITANT
     Route: 065
     Dates: start: 20141230
  2. TRASTUZUMAB [Suspect]
     Active Substance: TRASTUZUMAB
     Indication: BREAST CANCER
     Dosage: LOADING DOSE 8 MG/KG  AS PER PROTOCOL
     Route: 042
     Dates: start: 20140909
  3. GASTROPINE [Concomitant]
     Route: 065
     Dates: start: 20141230
  4. TRASTUZUMAB [Suspect]
     Active Substance: TRASTUZUMAB
     Dosage: MAINTAINCE DOSE AS PER PROTOCOL?MOST RECENT DOSE PRIOR TO SAE: 30/DEC/2014.
     Route: 042
  5. PACLITAXEL. [Suspect]
     Active Substance: PACLITAXEL
     Indication: BREAST CANCER
     Dosage: MOST RECENT DOSE PRIOR TO SAE: 30/DEC/2014
     Route: 042
     Dates: start: 20140909
  6. PERTUZUMAB [Suspect]
     Active Substance: PERTUZUMAB
     Indication: BREAST CANCER
     Dosage: LOADING DOSE 840 MG AS PER PROTOCOL
     Route: 042
     Dates: start: 20140909, end: 20140909
  7. CARBOPLATIN. [Suspect]
     Active Substance: CARBOPLATIN
     Indication: BREAST CANCER
     Dosage: MOST RECENT DOSE PRIOR TO SAE: 30/DEC/2014
     Route: 042
     Dates: start: 20140909
  8. PERTUZUMAB [Suspect]
     Active Substance: PERTUZUMAB
     Dosage: MAINTAINCE DOSE AS PER PROTOCOL ?MOST RECENT DOSE PRIOR TO SAE: 30/DEC/2014
     Route: 042

REACTIONS (1)
  - Chest pain [Recovered/Resolved]

NARRATIVE: CASE EVENT DATE: 20141230
